FAERS Safety Report 9682553 (Version 2)
Quarter: 2013Q4

REPORT INFORMATION
  Report Type: Spontaneous
  Country: GB (occurrence: GB)
  Receive Date: 20131015
  Receipt Date: 20131015
  Transmission Date: 20140711
  Serious: Yes (Life-Threatening, Hospitalization, Disabling, Other)
  Sender: FDA-Public Use
  Company Number: GB-DRREDDYS-GER/UKI/12/0026072

PATIENT
  Age: 50 Year
  Sex: Female
  Weight: 50 kg

DRUGS (12)
  1. RISPERIDONE [Suspect]
     Indication: ABNORMAL BEHAVIOUR
     Route: 048
     Dates: start: 20080924, end: 200903
  2. RISPERIDONE [Suspect]
     Route: 048
     Dates: start: 200903
  3. RISPERIDONE [Suspect]
     Route: 048
     Dates: start: 20110120, end: 20110124
  4. RISPERIDONE [Suspect]
     Route: 048
     Dates: start: 201103, end: 201112
  5. RISPERIDONE [Suspect]
     Route: 048
  6. RISPERIDONE [Suspect]
     Route: 048
     Dates: start: 200812
  7. ANTIBIOTICS [Concomitant]
     Indication: STAPHYLOCOCCAL INFECTION
     Dates: start: 201102
  8. ANTIBIOTICS [Concomitant]
     Indication: CLOSTRIDIUM DIFFICILE INFECTION
     Dates: end: 201208
  9. ANALGESIC [Concomitant]
     Indication: PAIN
  10. BUTRANS [Concomitant]
     Indication: PRODUCT USED FOR UNKNOWN INDICATION
  11. CITALOPRAM [Concomitant]
     Indication: PRODUCT USED FOR UNKNOWN INDICATION
  12. MUSCLE RELAXANT NOS [Concomitant]
     Indication: PRODUCT USED FOR UNKNOWN INDICATION

REACTIONS (21)
  - Psychotic disorder [Unknown]
  - Dystonia [Not Recovered/Not Resolved]
  - Dyspnoea [Unknown]
  - Extrapyramidal disorder [Not Recovered/Not Resolved]
  - Oromandibular dystonia [Not Recovered/Not Resolved]
  - Pleurothotonus [Not Recovered/Not Resolved]
  - Confusional state [Unknown]
  - Salivary hypersecretion [Unknown]
  - Spasmodic dysphonia [Unknown]
  - Emotional distress [Unknown]
  - Sedation [Not Recovered/Not Resolved]
  - Somnolence [Unknown]
  - Muscle spasticity [Unknown]
  - Aphasia [Not Recovered/Not Resolved]
  - Sydenham^s chorea [Unknown]
  - Tardive dyskinesia [Unknown]
  - Aggression [Not Recovered/Not Resolved]
  - Condition aggravated [Unknown]
  - Stupor [Unknown]
  - Overdose [Unknown]
  - Quadriplegia [Unknown]
